FAERS Safety Report 20504479 (Version 7)
Quarter: 2022Q3

REPORT INFORMATION
  Report Type: Report from Study
  Country: US (occurrence: US)
  Receive Date: 20220223
  Receipt Date: 20220827
  Transmission Date: 20221026
  Serious: Yes (Hospitalization, Other)
  Sender: FDA-Public Use
  Company Number: US-NOVARTISTESTPH-NVSC2022US040650

PATIENT
  Sex: Female
  Weight: 12.245 kg

DRUGS (7)
  1. TREPROSTINIL [Suspect]
     Active Substance: TREPROSTINIL
     Indication: Pulmonary arterial hypertension
     Dosage: 28 NG/KG/MIN, CONTINUOUS
     Route: 058
     Dates: start: 20220215
  2. TREPROSTINIL [Suspect]
     Active Substance: TREPROSTINIL
     Dosage: 14 NG/KG/MIN, CONTINUOUS
     Route: 058
  3. TREPROSTINIL [Suspect]
     Active Substance: TREPROSTINIL
     Dosage: 22 NG/KG/MIN, CONTINUOUS
     Route: 058
  4. TREPROSTINIL [Suspect]
     Active Substance: TREPROSTINIL
     Dosage: 14 NG/KG/MIN, CONTINUOUS
     Route: 065
  5. TREPROSTINIL [Suspect]
     Active Substance: TREPROSTINIL
     Dosage: 22 NG/KG/MIN, CONT
     Route: 058
     Dates: end: 202205
  6. BOSENTAN [Concomitant]
     Active Substance: BOSENTAN
     Indication: Product used for unknown indication
     Dosage: UNK
     Route: 065
  7. TADALAFIL [Concomitant]
     Active Substance: TADALAFIL
     Indication: Product used for unknown indication
     Dosage: UNK
     Route: 065

REACTIONS (10)
  - Pulmonary arterial hypertension [Unknown]
  - Lower limb fracture [Unknown]
  - Diarrhoea [Unknown]
  - Adverse drug reaction [Unknown]
  - Vomiting [Unknown]
  - Nausea [Unknown]
  - Infusion site pain [Unknown]
  - Injection site haemorrhage [Unknown]
  - Rash [Unknown]
  - Pruritus [Unknown]
